FAERS Safety Report 23429078 (Version 3)
Quarter: 2024Q3

REPORT INFORMATION
  Report Type: Spontaneous
  Country: US (occurrence: US)
  Receive Date: 20240122
  Receipt Date: 20240924
  Transmission Date: 20241016
  Serious: No
  Sender: SANOFI AVENTIS
  Company Number: US-SA-SAC20240112000260

PATIENT
  Age: 55 Year
  Sex: Male

DRUGS (2)
  1. DUPIXENT [Suspect]
     Active Substance: DUPILUMAB
     Indication: Neurodermatitis
     Dosage: 600 MG, 1X
     Route: 058
     Dates: start: 20240109, end: 20240109
  2. DUPIXENT [Suspect]
     Active Substance: DUPILUMAB
     Indication: End stage renal disease
     Dosage: 300 MG, QOW
     Route: 058
     Dates: start: 20240124

REACTIONS (14)
  - Injection site pain [Recovered/Resolved]
  - Wrong technique in product usage process [Unknown]
  - Constipation [Unknown]
  - Blood potassium increased [Unknown]
  - Abdominal pain [Unknown]
  - Chest pain [Unknown]
  - Pain in extremity [Unknown]
  - Vision blurred [Unknown]
  - Oropharyngeal pain [Unknown]
  - Nasopharyngitis [Unknown]
  - Gastritis [Unknown]
  - Dialysis [Unknown]
  - Drug ineffective [Unknown]
  - Product use in unapproved indication [Unknown]

NARRATIVE: CASE EVENT DATE: 20240101
